FAERS Safety Report 11374843 (Version 2)
Quarter: 2015Q3

REPORT INFORMATION
  Report Type: Report from Study
  Country: CA (occurrence: CA)
  Receive Date: 20150813
  Receipt Date: 20150824
  Transmission Date: 20151125
  Serious: Yes (Hospitalization, Other)
  Sender: FDA-Public Use
  Company Number: CA-ABBVIE-15K-028-1442014-00

PATIENT
  Sex: Female
  Weight: 54.48 kg

DRUGS (1)
  1. HUMIRA [Suspect]
     Active Substance: ADALIMUMAB
     Indication: CROHN^S DISEASE
     Route: 058
     Dates: start: 20130109, end: 20150723

REACTIONS (4)
  - Intestinal obstruction [Recovering/Resolving]
  - Drug effect incomplete [Not Recovered/Not Resolved]
  - Crohn^s disease [Recovering/Resolving]
  - Gastrointestinal disorder [Unknown]
